FAERS Safety Report 18042207 (Version 1)
Quarter: 2020Q3

REPORT INFORMATION
  Report Type: Spontaneous
  Country: FR (occurrence: FR)
  Receive Date: 20200720
  Receipt Date: 20200720
  Transmission Date: 20201103
  Serious: Yes (Other)
  Sender: FDA-Public Use
  Company Number: FR-AUROBINDO-AUR-APL-2020-036059

PATIENT
  Age: 85 Year
  Sex: Female

DRUGS (3)
  1. VELCADE [Suspect]
     Active Substance: BORTEZOMIB
     Indication: PLASMA CELL MYELOMA
     Dosage: 1.3 MILLIGRAM/SQ. METER, EVERY WEEK (FOR 4 WEEKS)
     Route: 065
  2. MELPHALAN. [Suspect]
     Active Substance: MELPHALAN
     Indication: PLASMA CELL MYELOMA
     Dosage: 36 MILLIGRAM/SQ. METER, EVERY WEEK
     Route: 065
  3. PREDNISONE. [Suspect]
     Active Substance: PREDNISONE
     Indication: PLASMA CELL MYELOMA
     Dosage: 240 MILLIGRAM/SQ. METER, EVERY WEEK
     Route: 065

REACTIONS (4)
  - Urinary incontinence [Unknown]
  - Vomiting [Unknown]
  - Diarrhoea [Unknown]
  - Blood disorder [Unknown]

NARRATIVE: CASE EVENT DATE: 20180522
